FAERS Safety Report 7354562-5 (Version None)
Quarter: 2011Q1

REPORT INFORMATION
  Report Type: 
  Country: None (occurrence: None)
  Receive Date: 20110316
  Receipt Date: 20100917
  Transmission Date: 20110831
  Serious: Yes (Hospitalization)
  Sender: FDA-Public Use
  Company Number: US-BAYER-201027470NA

PATIENT
  Sex: Female
  Weight: 68.481 kg

DRUGS (17)
  1. OCELLA [Suspect]
     Indication: PRODUCT USED FOR UNKNOWN INDICATION
     Route: 048
     Dates: start: 20070901
  2. DOXYCYCLINE [Concomitant]
     Dosage: UNK
     Route: 048
     Dates: start: 20080519
  3. VALTREX [Concomitant]
     Dosage: UNK
     Route: 048
     Dates: start: 20080524
  4. AMOXICILLIN [Concomitant]
     Dosage: UNK
     Route: 048
     Dates: start: 20090211
  5. YAZ [Suspect]
     Indication: MENOPAUSAL SYMPTOMS
  6. AMBIEN CR [Concomitant]
     Dosage: UNK
     Route: 048
  7. METHYLPREDNISOLONE [Concomitant]
     Dosage: UNK
     Route: 048
     Dates: start: 20090211
  8. AMOXICILLIN AND CLAVULANATE POTASSIUM [Concomitant]
     Dosage: UNK
     Route: 048
     Dates: start: 20071211
  9. TRAMADOL [Concomitant]
     Dosage: UNK
     Route: 048
     Dates: start: 20090226
  10. ZOVIRAX [Concomitant]
     Dosage: UNK
     Route: 061
     Dates: start: 20090323
  11. FLUCONAZOLE [Concomitant]
     Dosage: UNK
     Route: 048
     Dates: start: 20071211
  12. CYCLOBENZAPRINE [Concomitant]
     Dosage: UNK
     Route: 048
     Dates: start: 20090226
  13. METHOCARBAMOL [Concomitant]
     Dosage: UNK
     Route: 048
     Dates: start: 20090323
  14. ASPIRIN [Concomitant]
     Dosage: UNK
     Route: 048
     Dates: start: 20091221
  15. YAZ [Suspect]
     Indication: CONTRACEPTION
     Dosage: UNK UNK, QD
     Route: 048
     Dates: start: 20070901, end: 20091201
  16. YASMIN [Suspect]
     Indication: PRODUCT USED FOR UNKNOWN INDICATION
     Route: 048
     Dates: start: 20070901
  17. LIPITOR [Concomitant]
     Dosage: UNK
     Route: 048
     Dates: start: 20091221

REACTIONS (1)
  - TRANSIENT ISCHAEMIC ATTACK [None]
